FAERS Safety Report 9918868 (Version 1)
Quarter: 2014Q1

REPORT INFORMATION
  Report Type: Report from Study
  Country: DE (occurrence: DE)
  Receive Date: 20140224
  Receipt Date: 20140224
  Transmission Date: 20141002
  Serious: Yes (Hospitalization)
  Sender: FDA-Public Use
  Company Number: DE-UCBSA-113026

PATIENT
  Age: 79 Year
  Sex: Female
  Weight: 53 kg

DRUGS (13)
  1. NEUPRO [Suspect]
     Indication: RESTLESS LEGS SYNDROME
     Dosage: 6 MG/24 HOUR
     Route: 062
  2. ASA [Concomitant]
     Indication: PLATELET AGGREGATION INHIBITION
     Route: 048
  3. CORDAREX [Concomitant]
     Indication: CARDIAC DISORDER
     Route: 048
  4. RAMIPRIL [Concomitant]
     Indication: HYPERTENSION
     Route: 048
  5. BISOPROLOL [Concomitant]
     Indication: HYPERTENSION
     Route: 048
  6. SPIRIVA [Concomitant]
     Indication: CHRONIC OBSTRUCTIVE PULMONARY DISEASE
     Route: 048
  7. SPIRONOLACTON [Concomitant]
     Indication: CARDIAC FAILURE
     Route: 048
  8. TORASEMIDE [Concomitant]
     Indication: HYPERTENSION
     Route: 048
  9. XIPAMID [Concomitant]
     Indication: HYPERTENSION
     Route: 048
  10. MIFLONIDE [Concomitant]
     Indication: CHRONIC OBSTRUCTIVE PULMONARY DISEASE
     Dosage: INHALATION
  11. FORMOTEROL [Concomitant]
     Indication: CHRONIC OBSTRUCTIVE PULMONARY DISEASE
     Dosage: INHALATION
  12. RESTEX [Concomitant]
     Indication: RESTLESS LEGS SYNDROME
     Dosage: 100/25 MG TWICE A DAY
     Route: 048
  13. BERODUAL [Concomitant]
     Indication: CHRONIC OBSTRUCTIVE PULMONARY DISEASE
     Dosage: AEROSOL; 20/50 MICROGRAM; } 3 PER DAY

REACTIONS (2)
  - Cardiac failure [Unknown]
  - Arrhythmia [Unknown]
